FAERS Safety Report 9328252 (Version 1)
Quarter: 2013Q2

REPORT INFORMATION
  Report Type: Spontaneous
  Country: US (occurrence: US)
  Receive Date: 20130604
  Receipt Date: 20130604
  Transmission Date: 20140414
  Serious: No
  Sender: FDA-Public Use
  Company Number: US-SANOFI-AVENTIS-2012SA039706

PATIENT
  Sex: Male

DRUGS (14)
  1. LANTUS [Suspect]
     Route: 058
  2. HUMALOG [Concomitant]
  3. SIMVASTATIN [Concomitant]
  4. LORAZEPAM [Concomitant]
  5. LASIX [Concomitant]
  6. METOCLOPRAMIDE [Concomitant]
  7. METFORMIN [Concomitant]
  8. AMARYL [Concomitant]
  9. VYTORIN [Concomitant]
  10. ALL OTHER THERAPEUTIC PRODUCTS [Concomitant]
  11. PLAVIX [Concomitant]
  12. PROTONIX [Concomitant]
  13. ISOSORBIDE MONONITRATE [Concomitant]
  14. ZETIA [Concomitant]

REACTIONS (1)
  - Nausea [Unknown]
